FAERS Safety Report 12982754 (Version 1)
Quarter: 2016Q4

REPORT INFORMATION
  Report Type: Report from Study
  Country: US (occurrence: US)
  Receive Date: 20161129
  Receipt Date: 20161129
  Transmission Date: 20170207
  Serious: Yes (Other)
  Sender: FDA-Public Use
  Company Number: US-UCBSA-2016025533

PATIENT
  Sex: Female

DRUGS (4)
  1. LEVETIRACETAM. [Suspect]
     Active Substance: LEVETIRACETAM
     Dosage: 2000MG
  2. LEVETIRACETAM. [Suspect]
     Active Substance: LEVETIRACETAM
     Indication: PRODUCT USED FOR UNKNOWN INDICATION
     Dosage: UNK, 750 TWICE DAILY
  3. VIMPAT [Suspect]
     Active Substance: LACOSAMIDE
     Indication: PRODUCT USED FOR UNKNOWN INDICATION
     Dosage: 100MG
  4. LEVETIRACETAM. [Suspect]
     Active Substance: LEVETIRACETAM
     Dosage: UNK, 1500 TWICE DAILY

REACTIONS (8)
  - Fatigue [Not Recovered/Not Resolved]
  - Hypersomnia [Unknown]
  - Seizure [Unknown]
  - Unresponsive to stimuli [Unknown]
  - Speech disorder [Unknown]
  - Generalised tonic-clonic seizure [Unknown]
  - Movement disorder [Unknown]
  - Headache [Unknown]
